FAERS Safety Report 6991365-5 (Version None)
Quarter: 2010Q3

REPORT INFORMATION
  Report Type: 
  Country: None (occurrence: None)
  Receive Date: 20100916
  Receipt Date: 20090820
  Transmission Date: 20110219
  Serious: No
  Sender: FDA-Public Use
  Company Number: US-WYE-H10676109

PATIENT
  Sex: Female

DRUGS (4)
  1. PRISTIQ [Suspect]
     Indication: DEPRESSION
     Route: 048
     Dates: start: 20090819
  2. CALCIUM [Concomitant]
     Indication: MINERAL SUPPLEMENTATION
     Dosage: DOSE UNKNOWN
     Route: 065
  3. TYLENOL [Concomitant]
     Indication: PAIN
     Dosage: DOSE UNKNOWN
     Route: 065
  4. LORATADINE [Concomitant]
     Indication: HYPERSENSITIVITY
     Dosage: DOSE UNKNOWN
     Route: 065

REACTIONS (4)
  - DECREASED APPETITE [None]
  - INSOMNIA [None]
  - NAUSEA [None]
  - TACHYPHRENIA [None]
